FAERS Safety Report 6230362-4 (Version None)
Quarter: 2009Q2

REPORT INFORMATION
  Report Type: 
  Country: None (occurrence: None)
  Receive Date: 20090611
  Receipt Date: 20090607
  Transmission Date: 20091009
  Serious: Yes (Hospitalization)
  Sender: FDA-Public Use
  Company Number: D0061859A

PATIENT
  Age: 41 Year
  Sex: Female
  Weight: 69.8539 kg

DRUGS (4)
  1. WELLBUTRIN XL [Suspect]
     Dosage: SEE DOSAGE TEXT/ORAL
     Route: 048
     Dates: start: 20090601, end: 20090601
  2. ASPIRIN [Suspect]
     Dosage: 400 MG/ SEE DOSAGE TEXT / ORAL
     Route: 048
     Dates: start: 20090601, end: 20090601
  3. ZOLPIDEM [Suspect]
     Dosage: 10 MG/ SEE DOSAGE TEXT / ORAL
     Route: 048
     Dates: start: 20090601, end: 20090601
  4. LORAZEPAM [Suspect]
     Dosage: 1 MG / SEE DOSAGE TEXT / ORAL
     Route: 048
     Dates: start: 20090601, end: 20090601

REACTIONS (5)
  - BASE EXCESS DECREASED [None]
  - BLOOD BICARBONATE DECREASED [None]
  - MULTIPLE DRUG OVERDOSE INTENTIONAL [None]
  - SOMNOLENCE [None]
  - SUICIDE ATTEMPT [None]
